FAERS Safety Report 4637630-8 (Version None)
Quarter: 2005Q2

REPORT INFORMATION
  Report Type: 
  Country: None (occurrence: None)
  Receive Date: 20050418
  Receipt Date: 20050408
  Transmission Date: 20051028
  Serious: Yes (Other)
  Sender: FDA-Public Use
  Company Number: US-GLAXOSMITHKLINE-A0553370A

PATIENT
  Age: 87 Year
  Sex: Female

DRUGS (3)
  1. PAXIL [Suspect]
     Indication: DEPRESSION
     Route: 048
  2. PLAVIX [Concomitant]
  3. THYROID TAB [Concomitant]

REACTIONS (4)
  - DEMENTIA [None]
  - DIZZINESS [None]
  - FALL [None]
  - GAIT DISTURBANCE [None]
